FAERS Safety Report 4728157-3 (Version None)
Quarter: 2005Q3

REPORT INFORMATION
  Report Type: 
  Country: None (occurrence: None)
  Receive Date: 20050728
  Receipt Date: 20050728
  Transmission Date: 20060218
  Serious: No
  Sender: FDA-Public Use
  Company Number: None

PATIENT

DRUGS (2)
  1. PEG-INTRON [Suspect]
  2. RIBAVIRIN [Suspect]

REACTIONS (7)
  - BLOOD AMYLASE INCREASED [None]
  - BLOOD GLUCOSE DECREASED [None]
  - BLOOD IRON INCREASED [None]
  - COELIAC DISEASE [None]
  - LIPASE INCREASED [None]
  - PANCREATITIS [None]
  - VITAMIN B6 DEFICIENCY [None]
